FAERS Safety Report 4747879-1 (Version None)
Quarter: 2005Q3

REPORT INFORMATION
  Report Type: 
  Country: None (occurrence: None)
  Receive Date: 20050816
  Receipt Date: 20050808
  Transmission Date: 20060218
  Serious: Yes (Other)
  Sender: FDA-Public Use
  Company Number: HQWYE839210AUG05

PATIENT
  Age: 20 Year
  Sex: Female

DRUGS (1)
  1. ADVIL [Suspect]
     Dosage: ONE INTAKE ORAL
     Route: 048
     Dates: start: 20040101

REACTIONS (5)
  - DIZZINESS [None]
  - DYSPNOEA [None]
  - ERYTHEMA [None]
  - HYPERSENSITIVITY [None]
  - PRURITUS [None]
